FAERS Safety Report 23017680 (Version 1)
Quarter: 2023Q4

REPORT INFORMATION
  Report Type: Spontaneous
  Country: US (occurrence: US)
  Receive Date: 20231003
  Receipt Date: 20231003
  Transmission Date: 20240110
  Serious: No
  Sender: FDA-Public Use
  Company Number: US-ELI_LILLY_AND_COMPANY-US202309016689

PATIENT
  Sex: Female

DRUGS (3)
  1. MOUNJARO [Suspect]
     Active Substance: TIRZEPATIDE
     Indication: Type 2 diabetes mellitus
     Dosage: UNK UNK, UNKNOWN
     Route: 058
     Dates: start: 202211
  2. MOUNJARO [Suspect]
     Active Substance: TIRZEPATIDE
     Dosage: 12.5 MG, UNKNOWN
     Route: 058
  3. LISINOPRIL [Suspect]
     Active Substance: LISINOPRIL
     Indication: Blood pressure abnormal
     Dosage: UNK UNK, UNKNOWN
     Route: 065

REACTIONS (2)
  - Allergic sinusitis [Unknown]
  - Blood pressure abnormal [Unknown]
